FAERS Safety Report 8807412 (Version 2)
Quarter: 2012Q4

REPORT INFORMATION
  Report Type: 
  Country: BR (occurrence: BR)
  Receive Date: 20120925
  Receipt Date: 20121207
  Transmission Date: 20130627
  Serious: Yes (Other)
  Sender: FDA-Public Use
  Company Number: BR-ELI_LILLY_AND_COMPANY-BR201202003249

PATIENT
  Sex: Female
  Weight: 53 kg

DRUGS (7)
  1. FORTEO [Suspect]
     Indication: OSTEOPOROSIS
     Dosage: UNK, qd
     Route: 058
  2. FORTEO [Suspect]
     Dosage: 20 ug, qd
     Route: 058
  3. CODEX [Concomitant]
     Dosage: UNK, tid
     Route: 065
  4. PARACETAMOL [Concomitant]
     Indication: PAIN
     Dosage: UNK, unknown
     Route: 065
  5. CELEBRA [Concomitant]
     Indication: SPINAL DISORDER
     Dosage: 1 DF, qd
  6. OMEPRAZOLE [Concomitant]
     Dosage: 1 DF, unknown
     Route: 065
  7. ARTROLIVE [Concomitant]
     Indication: OSTEOARTHRITIS
     Dosage: 2 DF, qd
     Route: 065

REACTIONS (5)
  - Weight decreased [Not Recovered/Not Resolved]
  - Decreased appetite [Unknown]
  - Depression [Unknown]
  - Aphagia [Not Recovered/Not Resolved]
  - Nausea [Not Recovered/Not Resolved]
